FAERS Safety Report 24059172 (Version 1)
Quarter: 2024Q3

REPORT INFORMATION
  Report Type: Report from Study
  Country: CO (occurrence: CO)
  Receive Date: 20240708
  Receipt Date: 20240708
  Transmission Date: 20241017
  Serious: Yes (Other)
  Sender: ROCHE
  Company Number: CO-002147023-NVSC2021CO206539

PATIENT
  Age: 56 Year
  Sex: Female
  Weight: 69.0 kg

DRUGS (6)
  1. XOLAIR [Suspect]
     Active Substance: OMALIZUMAB
     Indication: Idiopathic urticaria
     Dosage: 300 MG, QMO (STARTED 5 YEAR AGO)
     Route: 058
     Dates: start: 20150506
  2. XOLAIR [Suspect]
     Active Substance: OMALIZUMAB
     Indication: Chronic spontaneous urticaria
     Dosage: 300 MG, QMO
     Route: 058
  3. XOLAIR [Suspect]
     Active Substance: OMALIZUMAB
     Dosage: ONE AMPULE EVERY 15 DAYS
     Route: 058
  4. LOSARTAN [Suspect]
     Active Substance: LOSARTAN
     Indication: Hypertension
     Route: 048
  5. LEVOCETIRIZINE [Concomitant]
     Active Substance: LEVOCETIRIZINE
     Indication: Product used for unknown indication
     Dosage: 5 MG (5 YEARS AGO)
     Route: 048
  6. PREDNISOLONE [Concomitant]
     Active Substance: PREDNISOLONE

REACTIONS (14)
  - Drug dependence [Unknown]
  - Feeling abnormal [Unknown]
  - Swelling [Unknown]
  - Peripheral swelling [Unknown]
  - Skin lesion [Unknown]
  - Pruritus [Unknown]
  - Hypersensitivity [Unknown]
  - Mood altered [Unknown]
  - Inflammation [Unknown]
  - Product availability issue [Unknown]
  - Drug ineffective [Unknown]
  - Incorrect dose administered [Unknown]
  - Urticaria [Unknown]
  - Dyspnoea [Unknown]

NARRATIVE: CASE EVENT DATE: 20210701
